APPROVED DRUG PRODUCT: SELENIUM SULFIDE
Active Ingredient: SELENIUM SULFIDE
Strength: 2.5%
Dosage Form/Route: LOTION/SHAMPOO;TOPICAL
Application: A088228 | Product #001
Applicant: PHARMOBEDIENT CONSULTING
Approved: Sep 1, 1983 | RLD: No | RS: No | Type: DISCN